FAERS Safety Report 7152311-7 (Version None)
Quarter: 2010Q4

REPORT INFORMATION
  Report Type: 
  Country: None (occurrence: None)
  Receive Date: 20101123
  Receipt Date: 20101108
  Transmission Date: 20110411
  Serious: Yes (Hospitalization)
  Sender: FDA-Public Use
  Company Number: DSA_44289_2010

PATIENT
  Age: 73 Year
  Sex: Female

DRUGS (16)
  1. ENALAPRIL MALEATE [Suspect]
     Indication: ESSENTIAL HYPERTENSION
     Dosage: (10 MG QD ORAL), (5 MG QD ORAL)
     Route: 048
     Dates: end: 20100701
  2. ENALAPRIL MALEATE [Suspect]
     Indication: ESSENTIAL HYPERTENSION
     Dosage: (10 MG QD ORAL), (5 MG QD ORAL)
     Route: 048
     Dates: start: 20100701
  3. SIMVASTATIN [Suspect]
     Indication: PRODUCT USED FOR UNKNOWN INDICATION
     Dosage: (10 MG DAILY ORAL)
     Route: 048
     Dates: end: 20100701
  4. NORVASC [Suspect]
     Indication: ESSENTIAL HYPERTENSION
     Dosage: (5 MG DAILY ORAL)
     Route: 048
     Dates: end: 20100701
  5. ACETAMINOPHEN [Concomitant]
  6. TROMBYL [Concomitant]
  7. CALCICHEW [Concomitant]
  8. TAVEGYL [Concomitant]
  9. MINDIAB [Concomitant]
  10. METFORMIN HCL [Concomitant]
  11. METHOTREXATE [Concomitant]
  12. SELOKENZOC [Concomitant]
  13. GLYTRIN [Concomitant]
  14. OMEPRAZOLE [Concomitant]
  15. ZOPICLONE [Concomitant]
  16. BETAPRED [Concomitant]

REACTIONS (4)
  - BLOOD GLUCOSE DECREASED [None]
  - HYPOTENSION [None]
  - NAUSEA [None]
  - VOMITING [None]
